FAERS Safety Report 17328702 (Version 2)
Quarter: 2020Q1

REPORT INFORMATION
  Report Type: Spontaneous
  Country: NL (occurrence: NL)
  Receive Date: 20200127
  Receipt Date: 20200227
  Transmission Date: 20200409
  Serious: Yes (Other)
  Sender: FDA-Public Use
  Company Number: NL-MYLANLABS-2020M1009027

PATIENT
  Age: 70 Year
  Sex: Male

DRUGS (3)
  1. TRACYDAL [Suspect]
     Active Substance: TRANYLCYPROMINE SULFATE
     Indication: DEPRESSION
     Dosage: 2 TIMES DAILY 30MG
  2. TRACYDAL [Suspect]
     Active Substance: TRANYLCYPROMINE SULFATE
     Dosage: 60 MG IN THE MORNING
     Dates: start: 201909
  3. OLANZAPINE. [Suspect]
     Active Substance: OLANZAPINE
     Indication: PSYCHOTIC DISORDER
     Dosage: UNK

REACTIONS (7)
  - Depression [Unknown]
  - Contraindicated product administered [Recovered/Resolved]
  - Suicidal ideation [Recovered/Resolved]
  - Hallucination, visual [Recovered/Resolved]
  - Insomnia [Recovered/Resolved]
  - Hallucination, auditory [Recovered/Resolved]
  - Confusional state [Recovered/Resolved]

NARRATIVE: CASE EVENT DATE: 201911
